FAERS Safety Report 12426085 (Version 1)
Quarter: 2016Q2

REPORT INFORMATION
  Report Type: Spontaneous
  Country: IN (occurrence: IN)
  Receive Date: 20160601
  Receipt Date: 20160601
  Transmission Date: 20160815
  Serious: Yes (Hospitalization)
  Sender: FDA-Public Use
  Company Number: IN-HQ SPECIALTY-IN-2016INT000309

PATIENT
  Age: 55 Year
  Sex: Male

DRUGS (2)
  1. CISPLATIN. [Suspect]
     Active Substance: CISPLATIN
     Indication: SMALL CELL LUNG CANCER
     Dosage: UNK, THREE WEEKLY
  2. ETOPOSIDE. [Suspect]
     Active Substance: ETOPOSIDE
     Indication: SMALL CELL LUNG CANCER
     Dosage: UNK, THREE WEEKLY

REACTIONS (11)
  - Dyspnoea [Recovered/Resolved]
  - Troponin I increased [Unknown]
  - Sinus tachycardia [Unknown]
  - Acute myocardial infarction [Unknown]
  - Hyperhidrosis [Recovered/Resolved]
  - Electrocardiogram ST segment elevation [Unknown]
  - Hypotension [Unknown]
  - Prinzmetal angina [Unknown]
  - Chest pain [Recovered/Resolved]
  - Pyrexia [Recovered/Resolved]
  - Blood creatine phosphokinase MB increased [Unknown]
